FAERS Safety Report 7381356-7 (Version None)
Quarter: 2011Q1

REPORT INFORMATION
  Report Type: 
  Country: None (occurrence: None)
  Receive Date: 20110321
  Receipt Date: 20110310
  Transmission Date: 20110831
  Serious: Yes (Death, Hospitalization)
  Sender: FDA-Public Use
  Company Number: TAJPN-11-0216

PATIENT
  Age: 71 Year
  Sex: Female
  Weight: 48 kg

DRUGS (6)
  1. HALCION [Concomitant]
  2. VITAMEDIN (NEUROGRISEVIT) [Concomitant]
  3. TS-1 [Concomitant]
  4. FENTOS (FENTANYL CITRATE) [Concomitant]
  5. FEMARA [Concomitant]
  6. ABRAXANE [Suspect]
     Indication: BREAST CANCER METASTATIC
     Dosage: 260 MG
     Dates: start: 20101220, end: 20110114

REACTIONS (5)
  - PERIPHERAL SENSORY NEUROPATHY [None]
  - NEOPLASM MALIGNANT [None]
  - BREAST CANCER METASTATIC [None]
  - MONOPLEGIA [None]
  - GUILLAIN-BARRE SYNDROME [None]
